FAERS Safety Report 23245689 (Version 2)
Quarter: 2024Q1

REPORT INFORMATION
  Report Type: Spontaneous
  Country: US (occurrence: US)
  Receive Date: 20231130
  Receipt Date: 20240314
  Transmission Date: 20240410
  Serious: Yes (Disabling, Other)
  Sender: FDA-Public Use
  Company Number: US-OPELLA-2023OHG015572

PATIENT
  Age: 30 Year
  Sex: Male

DRUGS (12)
  1. TALC [Suspect]
     Active Substance: TALC
     Indication: Product used for unknown indication
     Route: 065
  2. APLENZIN [Concomitant]
     Active Substance: BUPROPION HYDROBROMIDE
     Indication: Product used for unknown indication
     Route: 048
     Dates: start: 20221121
  3. BUSPIRONE [Concomitant]
     Active Substance: BUSPIRONE HYDROCHLORIDE
     Indication: Product used for unknown indication
     Dosage: TABLET
     Dates: start: 20230713
  4. Calcium OR [Concomitant]
     Indication: Product used for unknown indication
     Dosage: TABLET
  5. CHOLECALCIFEROL [Concomitant]
     Active Substance: CHOLECALCIFEROL
     Indication: Product used for unknown indication
     Dosage: CAPSULE
     Route: 048
  6. CORLANOR [Concomitant]
     Active Substance: IVABRADINE HYDROCHLORIDE
     Indication: Product used for unknown indication
     Dosage: TABLET
     Route: 048
     Dates: start: 20230331
  7. DEXAMETHASONE [Concomitant]
     Active Substance: DEXAMETHASONE
     Indication: Product used for unknown indication
     Dosage: TABLET
     Route: 048
     Dates: start: 20230825
  8. ESTRADIOL [Concomitant]
     Active Substance: ESTRADIOL
     Indication: Product used for unknown indication
     Dosage: TABLET
     Route: 048
     Dates: start: 20230526
  9. FOLIC ACID [Concomitant]
     Active Substance: FOLIC ACID
     Indication: Product used for unknown indication
     Dosage: TABLET
     Route: 048
     Dates: start: 20230825
  10. LEVOTHYROXINE [Concomitant]
     Active Substance: LEVOTHYROXINE\LEVOTHYROXINE SODIUM
     Indication: Product used for unknown indication
     Dosage: TABLET
     Route: 048
     Dates: start: 20230526
  11. PROCHLORPERAZINE [Concomitant]
     Active Substance: PROCHLORPERAZINE
     Indication: Product used for unknown indication
     Dosage: TABLET
     Route: 048
     Dates: start: 20230825
  12. QUETIAPINE FUMARATE [Concomitant]
     Active Substance: QUETIAPINE FUMARATE
     Indication: Product used for unknown indication
     Dosage: TABLET
     Route: 048
     Dates: start: 20231109

REACTIONS (7)
  - Epithelioid mesothelioma [Unknown]
  - Exposure to chemical pollution [Unknown]
  - Disability [Unknown]
  - Pain [Unknown]
  - Anxiety [Unknown]
  - Discomfort [Unknown]
  - Fear [Unknown]

NARRATIVE: CASE EVENT DATE: 20230815
